FAERS Safety Report 21373639 (Version 2)
Quarter: 2022Q4

REPORT INFORMATION
  Report Type: Report from Study
  Country: HU (occurrence: HU)
  Receive Date: 20220926
  Receipt Date: 20221014
  Transmission Date: 20230113
  Serious: Yes (Other)
  Sender: FDA-Public Use
  Company Number: HU-ABBVIE-4129519

PATIENT
  Sex: Female

DRUGS (4)
  1. CARBIDOPA\LEVODOPA [Suspect]
     Active Substance: CARBIDOPA\LEVODOPA
     Indication: Parkinson^s disease
     Dosage: MORNING DOSE: 5.7 ML; CONTINUOUS DOSE: 1.9 ML/HOUR; EXTRA DOSE: 1.0 ML
     Route: 050
     Dates: start: 20220905
  2. CARBIDOPA\LEVODOPA [Suspect]
     Active Substance: CARBIDOPA\LEVODOPA
     Dosage: MORNING DOSE: 5.7 ML; CONTINUOUS DOSE: 2.1  ML/HOUR; EXTRA DOSE: 1.0 ML
     Route: 050
     Dates: start: 20190207, end: 20220904
  3. CAPTOPRIL R [Concomitant]
     Indication: Hypertension
     Route: 048
  4. FLUDROCORTISONE [Concomitant]
     Active Substance: FLUDROCORTISONE
     Indication: Dizziness
     Dosage: 0.05 MILLIGRAM
     Route: 048
     Dates: start: 2020

REACTIONS (8)
  - Loss of consciousness [Recovered/Resolved]
  - Hypotension [Recovering/Resolving]
  - Orthostatic hypotension [Recovering/Resolving]
  - Loss of consciousness [Not Recovered/Not Resolved]
  - Dizziness [Recovering/Resolving]
  - Fall [Recovered/Resolved]
  - Face injury [Recovering/Resolving]
  - Parkinson^s disease [Recovering/Resolving]

NARRATIVE: CASE EVENT DATE: 20220801
